FAERS Safety Report 9576396 (Version 1)
Quarter: 2013Q4

REPORT INFORMATION
  Report Type: Spontaneous
  Country: US (occurrence: US)
  Receive Date: 20131001
  Receipt Date: 20131001
  Transmission Date: 20140711
  Serious: No
  Sender: FDA-Public Use
  Company Number: US-AMGEN-USASP2013002976

PATIENT
  Sex: Male
  Weight: 133.79 kg

DRUGS (10)
  1. ENBREL [Suspect]
     Indication: PSORIATIC ARTHROPATHY
     Dosage: 50 MG, QWK
     Route: 058
  2. METHOTREXATE [Concomitant]
     Dosage: 2.5 MG, UNK
  3. UNIRETIC                           /00206601/ [Concomitant]
     Dosage: 7.5-12
  4. FOLIC ACID [Concomitant]
     Dosage: 1 MG, UNK
  5. DIAZEPAM [Concomitant]
     Dosage: 2 MG, UNK
  6. VITAMIN E                          /00110501/ [Concomitant]
     Dosage: 1000 UNIT, UNK
  7. LEVOTHYROXIN [Concomitant]
     Dosage: 50 MUG, UNK
  8. ALLOPURINOL [Concomitant]
     Dosage: 300 MG, UNK
  9. FERROUS                            /00023501/ [Concomitant]
     Dosage: 15 MG/ML, UNK
  10. MULTIVITAMINS, PLAIN [Concomitant]
     Dosage: UNK

REACTIONS (1)
  - Therapeutic response decreased [Unknown]
